FAERS Safety Report 25754861 (Version 2)
Quarter: 2025Q4

REPORT INFORMATION
  Report Type: Spontaneous
  Country: US (occurrence: US)
  Receive Date: 20250903
  Receipt Date: 20251113
  Transmission Date: 20260119
  Serious: Yes (Other)
  Sender: RANBAXY
  Company Number: US-SUN PHARMACEUTICAL INDUSTRIES LTD-2025R1-524904

PATIENT
  Sex: Female

DRUGS (1)
  1. ILUMYA [Suspect]
     Active Substance: TILDRAKIZUMAB-ASMN
     Indication: Psoriasis
     Dosage: 100 MG AT WEEK 0, WEEK 4, AND THEN EVERY 12 WEEKS
     Route: 065
     Dates: start: 20240105

REACTIONS (2)
  - Lung neoplasm malignant [Recovered/Resolved]
  - Therapy cessation [Unknown]
